FAERS Safety Report 17740193 (Version 1)
Quarter: 2020Q2

REPORT INFORMATION
  Report Type: Spontaneous
  Country: MX (occurrence: MX)
  Receive Date: 20200501
  Receipt Date: 20200501
  Transmission Date: 20200714
  Serious: Yes (Hospitalization)
  Sender: FDA-Public Use
  Company Number: None

PATIENT
  Age: 29 Year
  Sex: Female
  Weight: 54 kg

DRUGS (2)
  1. AZITROCIN [Suspect]
     Active Substance: AZITHROMYCIN
     Indication: HYPERSENSITIVITY
     Dosage: ?          QUANTITY:4 DF DOSAGE FORM;?
     Route: 030
  2. COLLAGEN [Concomitant]
     Active Substance: COLLAGEN

REACTIONS (5)
  - Dizziness [None]
  - Hypertension [None]
  - Skin discolouration [None]
  - Swollen tongue [None]
  - Tachycardia [None]

NARRATIVE: CASE EVENT DATE: 20200501
